FAERS Safety Report 10072178 (Version 1)
Quarter: 2014Q2

REPORT INFORMATION
  Report Type: Spontaneous
  Country: US (occurrence: None)
  Receive Date: 20140410
  Receipt Date: 20140410
  Transmission Date: 20141212
  Serious: Yes (Other)
  Sender: FDA-Public Use
  Company Number: None

PATIENT
  Age: 35 Year
  Sex: Female

DRUGS (3)
  1. NEURONTIN [Suspect]
     Indication: NERVOUS SYSTEM DISORDER
     Route: 048
     Dates: start: 20131129, end: 20140409
  2. NEURONTIN [Suspect]
     Indication: INTERVERTEBRAL DISC OPERATION
     Route: 048
     Dates: start: 20131129, end: 20140409
  3. NEURONTIN [Suspect]
     Indication: POSTOPERATIVE CARE
     Route: 048
     Dates: start: 20131129, end: 20140409

REACTIONS (12)
  - Headache [None]
  - Dizziness [None]
  - Somnolence [None]
  - Weight increased [None]
  - Vertigo [None]
  - Pain [None]
  - Muscular weakness [None]
  - Amnesia [None]
  - Muscle spasms [None]
  - Muscle twitching [None]
  - Tremor [None]
  - Impaired driving ability [None]
